FAERS Safety Report 9559198 (Version 4)
Quarter: 2014Q1

REPORT INFORMATION
  Report Type: Spontaneous
  Country: AR (occurrence: AR)
  Receive Date: 20130927
  Receipt Date: 20140226
  Transmission Date: 20141002
  Serious: No
  Sender: FDA-Public Use
  Company Number: AR-AMGEN-ARGSP2013038357

PATIENT
  Age: 57 Year
  Sex: Female

DRUGS (5)
  1. ENBREL [Suspect]
     Indication: RHEUMATOID ARTHRITIS
     Dosage: 50 MG, WEEKLY
     Route: 065
     Dates: start: 20130507, end: 2013
  2. ENBREL [Suspect]
     Dosage: UNK
     Route: 065
     Dates: start: 2013
  3. METHOTREXATE [Concomitant]
     Dosage: UNK
  4. AMLOC                              /00972402/ [Concomitant]
     Dosage: 5 MG, ONCE A DAY
  5. CARVEDILOL [Concomitant]
     Dosage: 12.5 MG, ONCE A DAY

REACTIONS (1)
  - Hypersensitivity [Recovered/Resolved]
